FAERS Safety Report 4320878-X (Version None)
Quarter: 2004Q1

REPORT INFORMATION
  Report Type: 
  Country: None (occurrence: None)
  Receive Date: 20040322
  Receipt Date: 20031120
  Transmission Date: 20041129
  Serious: Yes (Life-Threatening, Other)
  Sender: FDA-Public Use
  Company Number: PHNR2003AU01636

PATIENT
  Age: 22 Year
  Sex: Female

DRUGS (2)
  1. SYNTOCINON [Suspect]
     Indication: POSTPARTUM HAEMORRHAGE
     Dosage: 2 X 10 IU INFUSION
     Dates: start: 20031119, end: 20031119
  2. SYNTOCINON [Suspect]
     Dosage: 4 X 10 IU INFUSIONS
     Dates: start: 20031119, end: 20031119

REACTIONS (5)
  - BLOOD PRESSURE INCREASED [None]
  - DRUG EXPOSURE DURING PREGNANCY [None]
  - DRUG INEFFECTIVE [None]
  - HAEMOGLOBIN DECREASED [None]
  - POSTPARTUM HAEMORRHAGE [None]
